FAERS Safety Report 7054100-0 (Version None)
Quarter: 2010Q4

REPORT INFORMATION
  Report Type: 
  Country: None (occurrence: None)
  Receive Date: 20101020
  Receipt Date: 20101007
  Transmission Date: 20110411
  Serious: Yes (Hospitalization)
  Sender: FDA-Public Use
  Company Number: PHHY2010VE67361

PATIENT
  Sex: Male

DRUGS (7)
  1. EXJADE [Suspect]
     Indication: IRON OVERLOAD
     Dosage: 500 MG, ONCE A DAY
     Route: 048
     Dates: start: 20080802
  2. HYDREA [Concomitant]
     Indication: WHITE BLOOD CELL COUNT INCREASED
     Dosage: 500 MG, ONCE A DAY
     Route: 048
     Dates: start: 20060703, end: 20101004
  3. HYDREA [Concomitant]
     Dosage: 500 MG, ONCE A DAY, THREE TIMES A WEEK.
     Dates: start: 20101004
  4. L-ARGININA [Concomitant]
     Dosage: 500 MG, ONCE A DAY, THREE TIMES A WEEK.
     Dates: start: 20100601
  5. FOLIC ACID [Concomitant]
     Dosage: 5 MG, ONCE A DAY
     Route: 048
  6. UNASYN [Concomitant]
     Indication: RESPIRATORY TRACT INFECTION
     Dosage: 250 MG
     Route: 048
     Dates: start: 20101008
  7. KLARICID [Concomitant]
     Indication: RESPIRATORY TRACT INFECTION
     Dosage: UNK
     Route: 048
     Dates: start: 20101008

REACTIONS (2)
  - HYPERSPLENISM [None]
  - RESPIRATORY TRACT INFECTION [None]
